FAERS Safety Report 16971052 (Version 1)
Quarter: 2019Q4

REPORT INFORMATION
  Report Type: Spontaneous
  Country: US (occurrence: US)
  Receive Date: 20191028
  Receipt Date: 20191028
  Transmission Date: 20200122
  Serious: Yes (Death)
  Sender: FDA-Public Use
  Company Number: None

PATIENT
  Age: 51 Year
  Sex: Male

DRUGS (7)
  1. FLUOXETINE [Concomitant]
     Active Substance: FLUOXETINE HYDROCHLORIDE
  2. VELTASSA [Suspect]
     Active Substance: PATIROMER
     Route: 048
     Dates: start: 20180821
  3. CARVEDILOL. [Concomitant]
     Active Substance: CARVEDILOL
  4. NIFEDIPINE. [Concomitant]
     Active Substance: NIFEDIPINE
  5. OLANZAPINE. [Concomitant]
     Active Substance: OLANZAPINE
  6. SEVELAMIR [Concomitant]
  7. WARFARIN [Concomitant]
     Active Substance: WARFARIN

REACTIONS (1)
  - Death [None]

NARRATIVE: CASE EVENT DATE: 20190930
